FAERS Safety Report 13073099 (Version 1)
Quarter: 2016Q4

REPORT INFORMATION
  Report Type: Spontaneous
  Country: US (occurrence: US)
  Receive Date: 20161229
  Receipt Date: 20161229
  Transmission Date: 20170207
  Serious: No
  Sender: FDA-Public Use
  Company Number: US-BAYER-2016-241022

PATIENT
  Sex: Female
  Weight: 59 kg

DRUGS (2)
  1. ANALGESICS [Concomitant]
     Active Substance: UNSPECIFIED INGREDIENT
     Route: 065
  2. MIRALAX [Suspect]
     Active Substance: POLYETHYLENE GLYCOL 3350
     Indication: GASTROINTESTINAL DISORDER
     Dosage: QUARTER TO A HALF CAP DAILY DOSE
     Route: 048

REACTIONS (2)
  - Abdominal distension [Recovered/Resolved]
  - Incorrect dose administered [Unknown]
